FAERS Safety Report 18672847 (Version 7)
Quarter: 2021Q2

REPORT INFORMATION
  Report Type: Report from Study
  Country: KR (occurrence: KR)
  Receive Date: 20201228
  Receipt Date: 20210614
  Transmission Date: 20210717
  Serious: Yes (Hospitalization)
  Sender: FDA-Public Use
  Company Number: KR-EISAI MEDICAL RESEARCH-EC-2020-085854

PATIENT
  Age: 71 Year
  Sex: Male
  Weight: 48 kg

DRUGS (17)
  1. LENVATINIB [Suspect]
     Active Substance: LENVATINIB
     Indication: GASTRIC CANCER
     Route: 048
     Dates: start: 20201116, end: 20201129
  2. TANTUM [Concomitant]
     Active Substance: BENZYDAMINE HYDROCHLORIDE
     Dates: start: 20201116
  3. FREAMINE III NOS [Concomitant]
     Active Substance: AMINO ACIDS
     Dates: start: 20201221, end: 20201221
  4. LACTICARE HC [Concomitant]
     Dates: start: 20201130
  5. NORZYME [Concomitant]
     Dates: start: 20201207
  6. VASELINE PURE [Concomitant]
     Active Substance: PETROLATUM
     Dates: start: 20201130
  7. LANSTON [Concomitant]
     Active Substance: LANSOPRAZOLE
     Dates: start: 20201207
  8. URSODIOL. [Concomitant]
     Active Substance: URSODIOL
     Dates: start: 20200316
  9. GODEX [Concomitant]
     Dates: start: 20200316
  10. LENVATINIB [Suspect]
     Active Substance: LENVATINIB
     Route: 048
     Dates: start: 20201207, end: 20201223
  11. MACPERAN [Concomitant]
     Active Substance: METOCLOPRAMIDE HYDROCHLORIDE
     Dates: start: 20201116
  12. SMECTA [Concomitant]
     Active Substance: MONTMORILLONITE
     Dates: start: 20201116
  13. PARACETAMOL [Concomitant]
     Active Substance: ACETAMINOPHEN
     Dates: start: 20201116
  14. MYPOL [Concomitant]
     Dates: start: 20201214
  15. LENVATINIB [Suspect]
     Active Substance: LENVATINIB
     Route: 048
     Dates: start: 20201229
  16. PEMBROLIZUMAB. [Suspect]
     Active Substance: PEMBROLIZUMAB
     Indication: GASTRIC CANCER
     Route: 041
     Dates: start: 20201116, end: 20201116
  17. PEMBROLIZUMAB. [Suspect]
     Active Substance: PEMBROLIZUMAB
     Route: 041
     Dates: start: 20210223

REACTIONS (1)
  - Diarrhoea [Recovered/Resolved]

NARRATIVE: CASE EVENT DATE: 20201223
